FAERS Safety Report 13268141 (Version 1)
Quarter: 2017Q1

REPORT INFORMATION
  Report Type: Spontaneous
  Country: US (occurrence: US)
  Receive Date: 20170209
  Receipt Date: 20170209
  Transmission Date: 20170428
  Serious: Yes (Hospitalization, Disabling)
  Sender: FDA-Public Use
  Company Number: None

PATIENT
  Age: 3 Year
  Sex: Female
  Weight: 13.62 kg

DRUGS (2)
  1. BABY TEETHING (HYLAND HOMEOPATHIC) [Suspect]
     Active Substance: HOMEOPATHICS
     Indication: TEETHING
     Dosage: 2-3 TABLETS DO NOT TAKE MORE THAN 7 DAYS 2-3 TABLE EVERY 4 HOURS MOUTH
     Route: 048
     Dates: start: 20151101, end: 20160201
  2. KEPPRA [Concomitant]
     Active Substance: LEVETIRACETAM

REACTIONS (1)
  - Petit mal epilepsy [None]

NARRATIVE: CASE EVENT DATE: 20150107
